FAERS Safety Report 8932985 (Version 1)
Quarter: 2012Q4

REPORT INFORMATION
  Report Type: Spontaneous
  Country: US (occurrence: None)
  Receive Date: 20121127
  Receipt Date: 20121127
  Transmission Date: 20130627
  Serious: No
  Sender: FDA-Public Use
  Company Number: None

PATIENT
  Age: 59 Year
  Sex: Female

DRUGS (1)
  1. CIMZIA 200MG PFS [Suspect]

REACTIONS (7)
  - Fatigue [None]
  - Epistaxis [None]
  - Injection site haemorrhage [None]
  - Wound haemorrhage [None]
  - Red blood cell abnormality [None]
  - Coagulopathy [None]
  - Contusion [None]
